FAERS Safety Report 6519106-6 (Version None)
Quarter: 2009Q4

REPORT INFORMATION
  Report Type: 
  Country: None (occurrence: None)
  Receive Date: 20091228
  Receipt Date: 20091222
  Transmission Date: 20100525
  Serious: Yes (Death, Life-Threatening, Hospitalization)
  Sender: FDA-Public Use
  Company Number: FR-SANOFI-AVENTIS-2009SA010327

PATIENT
  Age: 78 Year
  Sex: Male

DRUGS (10)
  1. KARDEGIC [Suspect]
     Indication: DRUG USE FOR UNKNOWN INDICATION
     Route: 048
     Dates: start: 20091103, end: 20091107
  2. LASILIX [Suspect]
     Indication: DRUG USE FOR UNKNOWN INDICATION
     Route: 048
  3. IMIPENEM AND CILASTATIN SODIUM [Suspect]
     Indication: INFECTION
     Route: 041
     Dates: start: 20090926, end: 20091018
  4. IMIPENEM AND CILASTATIN SODIUM [Suspect]
     Route: 041
     Dates: start: 20091107, end: 20091107
  5. CIFLOX [Suspect]
     Indication: INFECTION
     Route: 042
     Dates: start: 20090921, end: 20091001
  6. CIFLOX [Suspect]
     Route: 042
     Dates: start: 20091029, end: 20091107
  7. ANAFRANIL [Suspect]
     Indication: DEPRESSION
     Route: 048
     Dates: start: 20091103, end: 20091108
  8. RANITIDINE HCL [Suspect]
     Indication: DRUG USE FOR UNKNOWN INDICATION
     Route: 048
     Dates: start: 20090929, end: 20091109
  9. LEXOMIL [Suspect]
     Indication: DRUG USE FOR UNKNOWN INDICATION
     Route: 048
     Dates: start: 20091104, end: 20091109
  10. LACTULOSE [Suspect]
     Indication: DRUG USE FOR UNKNOWN INDICATION
     Route: 048
     Dates: start: 20091104, end: 20091107

REACTIONS (1)
  - TOXIC EPIDERMAL NECROLYSIS [None]
